FAERS Safety Report 20657128 (Version 2)
Quarter: 2023Q1

REPORT INFORMATION
  Report Type: Report from Study
  Country: US (occurrence: None)
  Receive Date: 20220331
  Receipt Date: 20230214
  Transmission Date: 20230418
  Serious: Yes (Hospitalization, Other)
  Sender: FDA-Public Use
  Company Number: US-ROCHE-2546449

PATIENT
  Age: 57 Year
  Sex: Female
  Weight: 83 kg

DRUGS (4)
  1. PLACEBO [Suspect]
     Active Substance: UNSPECIFIED INGREDIENT
     Indication: Invasive breast carcinoma
     Dosage: DAYS 1 AND 22?RECENT DOSE OF ATEZOLIZUMAB: 16/JAN/2020
     Route: 041
     Dates: start: 20191205
  2. TRASTUZUMAB [Suspect]
     Active Substance: TRASTUZUMAB
     Indication: Invasive breast carcinoma
     Dosage: 6MG/KG IV ON DAYS 1 AND 22; 8MG/KG IV C1D1 ONLY?RECENT DOSE OF TRASTUZUMAB: 16/JAN/2020, TOTAL DOSE
     Route: 041
     Dates: start: 20191205
  3. PERTUZUMAB [Suspect]
     Active Substance: PERTUZUMAB
     Indication: Invasive breast carcinoma
     Dosage: LOADING DOSE 840 MG FOLLOWED BY MAINTENANCE DOSE OF 420 MG?RECENT DOSE OF PERTUZUMAB: 16/JAN/2020
     Route: 042
     Dates: start: 20191205
  4. PACLITAXEL [Suspect]
     Active Substance: PACLITAXEL
     Indication: Invasive breast carcinoma
     Dosage: 80MG/M2 IV ON DAYS 1, 8, 15, 22, 29, AND 36?RECENT DOSE OF PACLITAXEL: 09/JAN/2020
     Route: 042
     Dates: start: 20191205

REACTIONS (2)
  - Skin infection [Recovering/Resolving]
  - Anaemia [Unknown]

NARRATIVE: CASE EVENT DATE: 20200113
